FAERS Safety Report 19033825 (Version 1)
Quarter: 2021Q1

REPORT INFORMATION
  Report Type: Spontaneous
  Country: US (occurrence: US)
  Receive Date: 20210319
  Receipt Date: 20210319
  Transmission Date: 20210420
  Serious: Yes (Other)
  Sender: FDA-Public Use
  Company Number: US-BIOMARINAP-US-2021-135463

PATIENT
  Age: 10 Year
  Sex: Female

DRUGS (1)
  1. BRINEURA [Suspect]
     Active Substance: CERLIPONASE ALFA
     Indication: NEURONAL CEROID LIPOFUSCINOSIS
     Dosage: 150 MILLIGRAM
     Route: 020
     Dates: start: 20170718

REACTIONS (1)
  - Central nervous system infection [Unknown]

NARRATIVE: CASE EVENT DATE: 20210217
